FAERS Safety Report 4504653-9 (Version None)
Quarter: 2004Q4

REPORT INFORMATION
  Report Type: 
  Country: None (occurrence: None)
  Receive Date: 20041118
  Receipt Date: 20041116
  Transmission Date: 20050328
  Serious: Yes (Death, Other)
  Sender: FDA-Public Use
  Company Number: PHBS2004US15399

PATIENT
  Age: 69 Year
  Sex: Female

DRUGS (8)
  1. CYCLOSPORINE [Suspect]
     Indication: RENAL TRANSPLANT
     Route: 065
  2. PREDNISONE TAB [Suspect]
     Indication: RENAL TRANSPLANT
  3. AZATHIOPRINE [Suspect]
     Indication: RENAL TRANSPLANT
  4. KETOCONAZOLE [Concomitant]
  5. SULFAMETHOXAZOLE + TRIMETHOPRIM [Concomitant]
  6. FAMOTIDINE [Concomitant]
  7. FUROSEMIDE [Concomitant]
  8. ATENOLOL [Concomitant]

REACTIONS (7)
  - EPSTEIN-BARR VIRUS INFECTION [None]
  - HAEMODIALYSIS [None]
  - HERPES ZOSTER [None]
  - LYMPHOPROLIFERATIVE DISORDER [None]
  - RASH PAPULAR [None]
  - RENAL FAILURE CHRONIC [None]
  - TRANSPLANT FAILURE [None]
